FAERS Safety Report 9931273 (Version 1)
Quarter: 2014Q1

REPORT INFORMATION
  Report Type: Spontaneous
  Country: NL (occurrence: NL)
  Receive Date: 20140228
  Receipt Date: 20140228
  Transmission Date: 20141002
  Serious: Yes (Hospitalization)
  Sender: FDA-Public Use
  Company Number: NL-AMGEN-NLDSP2014012839

PATIENT
  Age: 94 Year
  Sex: Male

DRUGS (1)
  1. ARANESP [Suspect]
     Indication: PRODUCT USED FOR UNKNOWN INDICATION
     Dosage: 40 MUG, Q4WK
     Route: 058
     Dates: start: 20091029

REACTIONS (3)
  - Pleural effusion [Unknown]
  - Confusional state [Unknown]
  - Dyspnoea [Unknown]
